FAERS Safety Report 12162879 (Version 1)
Quarter: 2016Q1

REPORT INFORMATION
  Report Type: Spontaneous
  Country: CA (occurrence: CA)
  Receive Date: 20160309
  Receipt Date: 20160309
  Transmission Date: 20160526
  Serious: Yes (Death, Disabling)
  Sender: FDA-Public Use
  Company Number: CA-TEVA-641874ACC

PATIENT
  Age: 12 Year
  Sex: Male

DRUGS (41)
  1. IRINOTECAN HYDROCHLORIDE. [Concomitant]
     Active Substance: IRINOTECAN HYDROCHLORIDE
  2. MEROPENEM. [Concomitant]
     Active Substance: MEROPENEM
  3. RANITIDINE [Concomitant]
     Active Substance: RANITIDINE\RANITIDINE HYDROCHLORIDE
  4. SUPRAX [Concomitant]
     Active Substance: CEFIXIME
  5. TRIMETHOPRIM-SULFAMETHOXAZOLE [Concomitant]
     Active Substance: SULFAMETHOXAZOLE\TRIMETHOPRIM
  6. CIPROFLOXACIN. [Concomitant]
     Active Substance: CIPROFLOXACIN
  7. GRANISETRON [Concomitant]
     Active Substance: GRANISETRON
  8. OLANZAPINE. [Concomitant]
     Active Substance: OLANZAPINE
  9. PIPERACILLIN/TAZOBACTAM [Concomitant]
     Active Substance: PIPERACILLIN SODIUM\TAZOBACTAM SODIUM
  10. CISPLATIN INJECTION [Suspect]
     Active Substance: CISPLATIN
     Indication: MEDULLOBLASTOMA
     Dosage: 85 MILLIGRAM DAILY;
     Route: 042
  11. ACYCLOVIR. [Concomitant]
     Active Substance: ACYCLOVIR
  12. DIMENHYDRINATE. [Concomitant]
     Active Substance: DIMENHYDRINATE
  13. METOCLOPRAMIDE. [Concomitant]
     Active Substance: METOCLOPRAMIDE
  14. ONDANSETRON [Concomitant]
     Active Substance: ONDANSETRON
  15. PENTAMIDINE ISETHIONATE INJ 300MG/VIAL BP [Concomitant]
  16. ATROPINE. [Concomitant]
     Active Substance: ATROPINE
  17. DEXAMETHASONE. [Concomitant]
     Active Substance: DEXAMETHASONE
  18. IMETELSTAT [Concomitant]
     Active Substance: IMETELSTAT
  19. LOPERAMIDE [Concomitant]
     Active Substance: LOPERAMIDE
  20. LORAZEPAM. [Concomitant]
     Active Substance: LORAZEPAM
  21. MAGNESIUM [Concomitant]
     Active Substance: MAGNESIUM
  22. NEUPOGEN [Concomitant]
     Active Substance: FILGRASTIM
  23. CODEINE [Concomitant]
     Active Substance: CODEINE
  24. CYCLOPHOSPHAMIDE. [Concomitant]
     Active Substance: CYCLOPHOSPHAMIDE
  25. VANCOMYCIN [Concomitant]
     Active Substance: VANCOMYCIN
  26. FAMCICLOVIR. [Concomitant]
     Active Substance: FAMCICLOVIR
  27. METRONIDAZOLE. [Concomitant]
     Active Substance: METRONIDAZOLE
  28. AMOXICILLIN/CLAVULANIC ACID [Concomitant]
     Active Substance: AMOXICILLIN\CLAVULANIC ACID
  29. FLUCONAZOLE. [Concomitant]
     Active Substance: FLUCONAZOLE
  30. MESNA. [Concomitant]
     Active Substance: MESNA
  31. TIMENTIN [Concomitant]
     Active Substance: CLAVULANATE POTASSIUM\TICARCILLIN DISODIUM
  32. TOBRAMYCIN INJECTION USP [Concomitant]
  33. VINCRISTINE SULFATE INJECTION USP [Concomitant]
     Active Substance: VINCRISTINE SULFATE
  34. ACETAMINOPHEN. [Concomitant]
     Active Substance: ACETAMINOPHEN
  35. AMITRIPTYLINE [Concomitant]
     Active Substance: AMITRIPTYLINE
  36. AMOXICILLIN. [Concomitant]
     Active Substance: AMOXICILLIN
  37. CARBOPLATIN. [Concomitant]
     Active Substance: CARBOPLATIN
  38. EMEND [Concomitant]
     Active Substance: APREPITANT
  39. MORPHINE [Concomitant]
     Active Substance: MORPHINE
  40. OCTREOTIDE. [Concomitant]
     Active Substance: OCTREOTIDE
  41. TEMOZOLOMIDE. [Concomitant]
     Active Substance: TEMOZOLOMIDE

REACTIONS (3)
  - Hypokalaemia [Fatal]
  - Hypophosphataemia [Fatal]
  - Renal tubular disorder [Fatal]
